FAERS Safety Report 14527841 (Version 2)
Quarter: 2018Q1

REPORT INFORMATION
  Report Type: Report from Study
  Country: US (occurrence: US)
  Receive Date: 20180213
  Receipt Date: 20180221
  Transmission Date: 20180509
  Serious: Yes (Death)
  Sender: FDA-Public Use
  Company Number: US-EXELIXIS-CABO-18012342

PATIENT
  Sex: Male

DRUGS (15)
  1. FOLIC ACID. [Concomitant]
     Active Substance: FOLIC ACID
  2. MEGESTROL ACETATE. [Concomitant]
     Active Substance: MEGESTROL ACETATE
  3. BENADRYL [Concomitant]
     Active Substance: DIPHENHYDRAMINE HYDROCHLORIDE
  4. MIRALAX [Concomitant]
     Active Substance: POLYETHYLENE GLYCOL 3350
  5. VITAMIN C [Concomitant]
     Active Substance: ASCORBIC ACID
  6. XGEVA [Concomitant]
     Active Substance: DENOSUMAB
  7. PREDNISONE. [Concomitant]
     Active Substance: PREDNISONE
  8. VITAMIN D3 [Concomitant]
     Active Substance: CHOLECALCIFEROL
  9. NORCO [Concomitant]
     Active Substance: ACETAMINOPHEN\HYDROCODONE BITARTRATE
  10. MULTIVITAMINS [Concomitant]
     Active Substance: VITAMINS
  11. GABAPENTIN. [Concomitant]
     Active Substance: GABAPENTIN
  12. CALCIUM [Concomitant]
     Active Substance: CALCIUM
  13. VITAMIN B12 [Concomitant]
     Active Substance: CYANOCOBALAMIN
  14. CABOMETYX [Suspect]
     Active Substance: CABOZANTINIB S-MALATE
     Indication: RENAL CANCER
     Dosage: 60 MG, QD
     Route: 048
     Dates: start: 20180114
  15. OXYCODONE [Concomitant]
     Active Substance: OXYCODONE

REACTIONS (1)
  - Malignant neoplasm progression [Fatal]
